FAERS Safety Report 7260029 (Version 3)
Quarter: 2014Q2

REPORT INFORMATION
  Report Type: Report from Study
  Country: US (occurrence: US)
  Receive Date: 20100128
  Receipt Date: 20140613
  Transmission Date: 20141212
  Serious: Yes (Hospitalization)
  Sender: FDA-Public Use
  Company Number: PHHO2010US01243

PATIENT
  Age: 11 Year
  Sex: Male
  Weight: 27.5 kg

DRUGS (2)
  1. ACZ885 [Suspect]
     Indication: CHRONIC INFANTILE NEUROLOGICAL CUTANEOUS AND ARTICULAR SYNDROME
     Dosage: 222 MG
     Route: 058
     Dates: start: 20090714
  2. DIAMOX [Concomitant]
     Indication: INTRACRANIAL PRESSURE INCREASED
     Dosage: UNK

REACTIONS (3)
  - Cellulitis staphylococcal [Recovered/Resolved]
  - Abscess [Recovered/Resolved]
  - Pyrexia [Recovered/Resolved]
